FAERS Safety Report 6897297-5 (Version None)
Quarter: 2010Q3

REPORT INFORMATION
  Report Type: 
  Country: None (occurrence: None)
  Receive Date: 20100802
  Receipt Date: 20070508
  Transmission Date: 20110219
  Serious: No
  Sender: FDA-Public Use
  Company Number: US-PFIZER INC-2007012801

PATIENT
  Sex: Female
  Weight: 102.1 kg

DRUGS (13)
  1. LYRICA [Suspect]
     Indication: NEURALGIA
     Route: 048
     Dates: start: 20060501, end: 20070101
  2. THYROID TAB [Concomitant]
  3. ANTIHYPERTENSIVES [Concomitant]
  4. DIURETICS [Concomitant]
  5. LIPITOR [Concomitant]
  6. ATENOLOL [Concomitant]
  7. SYNTHROID [Concomitant]
  8. ALTACE [Concomitant]
  9. NORVASC [Concomitant]
  10. IMITREX [Concomitant]
  11. CYCLOSPORINE [Concomitant]
  12. NEXIUM [Concomitant]
  13. EFUDIX ^ANDREU^ [Concomitant]

REACTIONS (4)
  - EYELID PTOSIS [None]
  - JOINT SWELLING [None]
  - OEDEMA PERIPHERAL [None]
  - PHOTOPHOBIA [None]
